FAERS Safety Report 8936941 (Version 1)
Quarter: 2012Q4

REPORT INFORMATION
  Report Type: 
  Country: GB (occurrence: GB)
  Receive Date: 20121130
  Receipt Date: 20121130
  Transmission Date: 20130627
  Serious: Yes (Other)
  Sender: FDA-Public Use
  Company Number: GB-SP-2012-11422

PATIENT
  Sex: Male

DRUGS (1)
  1. IMMUCYST [Suspect]
     Indication: BLADDER CANCER
     Dosage: Not reported
     Route: 065

REACTIONS (3)
  - Mycobacterial infection [Unknown]
  - Orchitis [Unknown]
  - Device infusion issue [Unknown]
